FAERS Safety Report 18306577 (Version 1)
Quarter: 2020Q3

REPORT INFORMATION
  Report Type: Other
  Country: US (occurrence: US)
  Receive Date: 20200924
  Receipt Date: 20200924
  Transmission Date: 20201103
  Serious: Yes (Other)
  Sender: FDA-Public Use
  Company Number: US-ROCHE-2682823

PATIENT
  Age: 48 Year
  Sex: Male

DRUGS (2)
  1. OSELTAMIVIR [Suspect]
     Active Substance: OSELTAMIVIR
     Indication: INFLUENZA
     Route: 065
     Dates: start: 20200102
  2. OSELTAMIVIR [Suspect]
     Active Substance: OSELTAMIVIR
     Route: 065
     Dates: start: 20200304

REACTIONS (2)
  - Sinusitis [Unknown]
  - Encephalitis [Unknown]

NARRATIVE: CASE EVENT DATE: 20200103
